FAERS Safety Report 12703450 (Version 2)
Quarter: 2017Q1

REPORT INFORMATION
  Report Type: Spontaneous
  Country: US (occurrence: US)
  Receive Date: 20160831
  Receipt Date: 20170310
  Transmission Date: 20170428
  Serious: Yes (Death, Other)
  Sender: FDA-Public Use
  Company Number: US-PFIZER INC-2016402759

PATIENT
  Age: 21 Year
  Sex: Male

DRUGS (11)
  1. COCAINE [Concomitant]
     Active Substance: COCAINE
     Dosage: UNK
  2. THIOPENTONE [Concomitant]
     Active Substance: THIOPENTAL SODIUM
     Dosage: 0.75 G, UNK (ORAL INTUBATION )
  3. EPINEPHRINE. [Suspect]
     Active Substance: EPINEPHRINE
     Dosage: UNK (1:1,000 SOLUTION)
  4. FLAXEDIL [Concomitant]
     Active Substance: GALLAMINE TRIETHIODIDE
     Dosage: 80 MG, UNK (ORAL INTUBATION)
  5. OMNOPON [Concomitant]
     Dosage: UNK
  6. SCOPOLAMINE [Concomitant]
     Active Substance: SCOPOLAMINE
     Dosage: UNK
  7. COCAINE [Concomitant]
     Active Substance: COCAINE
     Dosage: UNK 1CC, (ORAL INTUBATION )
  8. TRILENE [Concomitant]
     Dosage: UNK
  9. NITROUS OXIDE. [Concomitant]
     Active Substance: NITROUS OXIDE
     Dosage: UNK
  10. SALINE [Concomitant]
     Active Substance: SODIUM CHLORIDE
     Dosage: MADE UP AS 10 MINIMS IN 1 FLUID OUNCE
  11. OXYGEN. [Concomitant]
     Active Substance: OXYGEN
     Dosage: UNK

REACTIONS (2)
  - Accidental overdose [Fatal]
  - Toxicity to various agents [Fatal]
